FAERS Safety Report 9871483 (Version 2)
Quarter: 2014Q2

REPORT INFORMATION
  Report Type: Report from Study
  Country: US (occurrence: US)
  Receive Date: 20140205
  Receipt Date: 20140515
  Transmission Date: 20141212
  Serious: No
  Sender: FDA-Public Use
  Company Number: US-GILEAD-2014-0093756

PATIENT
  Age: 68 Year
  Sex: Male

DRUGS (3)
  1. SOFOSBUVIR [Suspect]
     Indication: CHRONIC HEPATITIS C
     Dosage: 400 MG, UNK
     Route: 065
     Dates: start: 20140127
  2. RIBAVIRIN [Concomitant]
  3. AMBIEN [Concomitant]
     Indication: INSOMNIA

REACTIONS (5)
  - Pollakiuria [Unknown]
  - Sleep disorder [Unknown]
  - Anxiety [Unknown]
  - Rash generalised [Unknown]
  - Insomnia [Unknown]
